FAERS Safety Report 13151822 (Version 1)
Quarter: 2017Q1

REPORT INFORMATION
  Report Type: Spontaneous
  Country: AU (occurrence: AU)
  Receive Date: 20170125
  Receipt Date: 20170125
  Transmission Date: 20170428
  Serious: Yes (Other)
  Sender: FDA-Public Use
  Company Number: AU-DRREDDYS-USA/AUS/17/0086465

PATIENT
  Age: 35 Year
  Sex: Female

DRUGS (2)
  1. ZOLEDRONIC ACID [Suspect]
     Active Substance: ZOLEDRONIC ACID
     Indication: OSTEOPOROSIS
  2. ZOLEDRONIC ACID [Suspect]
     Active Substance: ZOLEDRONIC ACID
     Indication: MASTOCYTOSIS
     Route: 065

REACTIONS (4)
  - Acute phase reaction [Unknown]
  - Sinus tachycardia [Unknown]
  - Pyrexia [Unknown]
  - Hypotension [Unknown]
